FAERS Safety Report 23500434 (Version 3)
Quarter: 2024Q1

REPORT INFORMATION
  Report Type: Spontaneous
  Country: US (occurrence: US)
  Receive Date: 20240208
  Receipt Date: 20240308
  Transmission Date: 20240410
  Serious: Yes (Other)
  Sender: FDA-Public Use
  Company Number: US-LUPIN PHARMACEUTICALS INC.-2024-00775

PATIENT

DRUGS (1)
  1. ALBUTEROL SULFATE [Suspect]
     Active Substance: ALBUTEROL SULFATE
     Indication: Asthma
     Dosage: UNK, Q4H, 2 PUFFS EVERY 4H.
     Dates: start: 202401

REACTIONS (5)
  - Device loosening [Unknown]
  - Chest discomfort [Unknown]
  - Dyspnoea [Unknown]
  - Device delivery system issue [Unknown]
  - Drug dose omission by device [Unknown]
